FAERS Safety Report 4879176-8 (Version None)
Quarter: 2006Q1

REPORT INFORMATION
  Report Type: 
  Country: None (occurrence: None)
  Receive Date: 20060112
  Receipt Date: 20060102
  Transmission Date: 20060701
  Serious: Yes (Death)
  Sender: FDA-Public Use
  Company Number: IT-ROCHE-430332

PATIENT
  Age: 70 Year
  Sex: Male

DRUGS (3)
  1. ROCEPHIN [Suspect]
     Route: 030
     Dates: start: 20050130, end: 20050208
  2. GLIBOMET [Suspect]
     Route: 048
     Dates: start: 20020201
  3. L 52 [Suspect]
     Route: 048
     Dates: start: 20050220, end: 20050220

REACTIONS (1)
  - HEPATITIS FULMINANT [None]
